FAERS Safety Report 12147105 (Version 1)
Quarter: 2016Q1

REPORT INFORMATION
  Report Type: Spontaneous
  Country: US (occurrence: US)
  Receive Date: 20160304
  Receipt Date: 20160304
  Transmission Date: 20160526
  Serious: No
  Sender: FDA-Public Use
  Company Number: US-RB-063632-14

PATIENT
  Age: 54 Year
  Sex: Female

DRUGS (15)
  1. SUBOXONE [Suspect]
     Active Substance: BUPRENORPHINE HYDROCHLORIDE\NALOXONE HYDROCHLORIDE
     Indication: PAIN
     Dosage: 20 MG
     Route: 060
  2. SUBOXONE [Suspect]
     Active Substance: BUPRENORPHINE HYDROCHLORIDE\NALOXONE HYDROCHLORIDE
     Dosage: UNK
     Route: 060
  3. SUBOXONE [Suspect]
     Active Substance: BUPRENORPHINE HYDROCHLORIDE\NALOXONE HYDROCHLORIDE
     Dosage: 8 MG, DAILY
     Route: 060
     Dates: start: 20141218
  4. DETROL LA [Concomitant]
     Active Substance: TOLTERODINE TARTRATE
     Indication: CYSTITIS INTERSTITIAL
     Dosage: DOSING DETAILS UNKNOWN DAILY
     Route: 048
  5. BUNAVAIL [Suspect]
     Active Substance: BUPRENORPHINE HYDROCHLORIDE\NALOXONE HYDROCHLORIDE DIHYDRATE
     Dosage: DAILY FOR ABOUT ONE MONTH
     Route: 002
  6. NICOTINE. [Concomitant]
     Active Substance: NICOTINE
     Indication: TOBACCO USER
     Dosage: 15 CIGARETTES DAILY
     Route: 055
  7. SUBOXONE [Suspect]
     Active Substance: BUPRENORPHINE HYDROCHLORIDE\NALOXONE HYDROCHLORIDE
     Dosage: UNK
     Route: 060
  8. SUBOXONE [Suspect]
     Active Substance: BUPRENORPHINE HYDROCHLORIDE\NALOXONE HYDROCHLORIDE
     Indication: DRUG DEPENDENCE
     Dosage: 16 MG DAILY
     Route: 060
     Dates: start: 201305
  9. SUBOXONE [Suspect]
     Active Substance: BUPRENORPHINE HYDROCHLORIDE\NALOXONE HYDROCHLORIDE
     Dosage: 16-20MG, TWICE A DAY
     Route: 060
     Dates: start: 20150414
  10. BUPRENORPHINE/NALOXONE GENERIC [Suspect]
     Active Substance: BUPRENORPHINE\NALOXONE
     Indication: PAIN
     Dosage: 20 MG DAILY
     Route: 060
  11. SUBOXONE [Suspect]
     Active Substance: BUPRENORPHINE HYDROCHLORIDE\NALOXONE HYDROCHLORIDE
     Indication: PAIN
     Dosage: 24 MG DAILY
     Route: 060
     Dates: end: 2011
  12. VALIUM [Concomitant]
     Active Substance: DIAZEPAM
     Indication: ANXIETY
     Dosage: 5 MG, PRN
     Route: 048
     Dates: start: 2011
  13. BUNAVAIL [Suspect]
     Active Substance: BUPRENORPHINE HYDROCHLORIDE\NALOXONE HYDROCHLORIDE DIHYDRATE
     Indication: PAIN
     Dosage: 10MG, DAILY
     Route: 002
     Dates: start: 20150309, end: 20150409
  14. SUBOXONE [Suspect]
     Active Substance: BUPRENORPHINE HYDROCHLORIDE\NALOXONE HYDROCHLORIDE
     Dosage: 20 MG,DAILY
     Route: 060
  15. SUBOXONE [Suspect]
     Active Substance: BUPRENORPHINE HYDROCHLORIDE\NALOXONE HYDROCHLORIDE
     Indication: PAIN
     Dosage: 20 MG DAILY
     Route: 060
     Dates: start: 2011, end: 201305

REACTIONS (14)
  - Off label use [Not Recovered/Not Resolved]
  - Dental caries [Not Recovered/Not Resolved]
  - Sinusitis [Recovered/Resolved]
  - Staphylococcal infection [Recovered/Resolved]
  - Product preparation error [Not Recovered/Not Resolved]
  - Anxiety [Not Recovered/Not Resolved]
  - Nausea [Recovered/Resolved]
  - Tooth fracture [Not Recovered/Not Resolved]
  - Gingival pain [Unknown]
  - Oral discomfort [Not Recovered/Not Resolved]
  - Tooth loss [Not Recovered/Not Resolved]
  - Streptococcal infection [Recovered/Resolved]
  - Drug withdrawal syndrome [Unknown]
  - Intentional underdose [Not Recovered/Not Resolved]

NARRATIVE: CASE EVENT DATE: 2010
